FAERS Safety Report 7219829-X (Version None)
Quarter: 2011Q1

REPORT INFORMATION
  Report Type: 
  Country: None (occurrence: None)
  Receive Date: 20110111
  Receipt Date: 20110107
  Transmission Date: 20110831
  Serious: Yes (Life-Threatening, Hospitalization)
  Sender: FDA-Public Use
  Company Number: US-ROCHE-695288

PATIENT
  Sex: Male
  Weight: 84.5 kg

DRUGS (24)
  1. ACTONEL [Concomitant]
     Dates: start: 20010109
  2. PLAQUENIL [Concomitant]
     Route: 048
     Dates: start: 19981002
  3. PREDNISONE [Concomitant]
     Route: 048
     Dates: start: 20100507
  4. ASPIRIN [Concomitant]
     Dates: start: 20100405
  5. COENZYME Q10 [Concomitant]
     Dates: start: 20100405
  6. PREDNISONE [Concomitant]
     Route: 048
     Dates: start: 20090805
  7. TOCILIZUMAB [Suspect]
     Dosage: DOSE: 33.6 ML. LAST DOSE PRIOR TO SAE 06 MAY 2010
     Route: 042
     Dates: start: 20100308
  8. ZOCOR [Concomitant]
     Dates: start: 20100405
  9. CALTRATE [Concomitant]
     Dates: start: 19940824
  10. NEXIUM [Concomitant]
     Dates: start: 20020701
  11. UROXATRAL [Concomitant]
     Dates: start: 20070312
  12. IMURAN [Concomitant]
     Dates: start: 19910830
  13. PREDNISONE [Concomitant]
     Route: 048
  14. TOCILIZUMAB [Suspect]
     Dosage: DOSE: 33.6 ML
     Route: 042
     Dates: start: 20100111
  15. TOCILIZUMAB [Suspect]
     Dosage: EARLIER ENROLLED IN WA18063
     Route: 042
  16. TOCILIZUMAB [Suspect]
     Indication: RHEUMATOID ARTHRITIS
     Dosage: STARTING DOSE: 8 MG/KG MONTHLY.
     Route: 042
     Dates: start: 20060925
  17. TOCILIZUMAB [Suspect]
     Dosage: DOSE: 33.6 ML
     Route: 042
     Dates: start: 20100208
  18. SKELAXIN [Concomitant]
     Dates: start: 20060217, end: 20100101
  19. TRICOR [Concomitant]
     Route: 048
     Dates: start: 20080603
  20. PLAVIX [Concomitant]
     Dates: start: 20100405
  21. LISINOPRIL [Concomitant]
     Dates: start: 20100405
  22. TOCILIZUMAB [Suspect]
     Dosage: DOSE: 33.2 ML
     Route: 042
     Dates: start: 20091214
  23. ADVIL [Concomitant]
     Dates: start: 20030101
  24. TOPROL-XL [Concomitant]
     Dates: start: 20100405

REACTIONS (2)
  - ANGINA PECTORIS [None]
  - MYOCARDIAL INFARCTION [None]
